FAERS Safety Report 7204213-5 (Version None)
Quarter: 2010Q4

REPORT INFORMATION
  Report Type: 
  Country: None (occurrence: None)
  Receive Date: 20101230
  Receipt Date: 20101220
  Transmission Date: 20110411
  Serious: Yes (Hospitalization, Other)
  Sender: FDA-Public Use
  Company Number: US-BAYER-2010-006242

PATIENT
  Sex: Male

DRUGS (2)
  1. INTERFERON BETA-1B [Suspect]
     Indication: SECONDARY PROGRESSIVE MULTIPLE SCLEROSIS
     Dosage: 8 MIU, QOD
     Route: 058
     Dates: start: 20101027
  2. INTERFERON BETA-1B [Suspect]
     Dosage: 6 MIU, QOD
     Route: 058

REACTIONS (6)
  - APHASIA [None]
  - ASTHENIA [None]
  - MOBILITY DECREASED [None]
  - MULTIPLE SCLEROSIS RELAPSE [None]
  - SWELLING FACE [None]
  - URINARY INCONTINENCE [None]
